FAERS Safety Report 7233715-0 (Version None)
Quarter: 2011Q1

REPORT INFORMATION
  Report Type: 
  Country: None (occurrence: None)
  Receive Date: 20110119
  Receipt Date: 20110108
  Transmission Date: 20110831
  Serious: No
  Sender: FDA-Public Use
  Company Number: US-B.I. PHARMACEUTICALS,INC./RIDGEFIELD-2011-BP-00861BP

PATIENT
  Sex: Male

DRUGS (8)
  1. LEVOTHYROXINE [Concomitant]
     Indication: HYPOTHYROIDISM
     Dosage: 50 MCG
     Dates: start: 19900101
  2. HYDROCO-TAB [Concomitant]
     Indication: ARTHRALGIA
     Dates: start: 19800101
  3. SIMVASTATIN [Concomitant]
     Indication: BLOOD CHOLESTEROL INCREASED
     Dosage: 80 MG
     Dates: start: 19800101
  4. ICAP [Concomitant]
     Indication: MACULAR DEGENERATION
     Dates: start: 19800101
  5. OSTEO BIFLEX [Concomitant]
     Indication: ARTHRALGIA
     Dates: start: 20050101
  6. GLIPEZIDE [Concomitant]
     Indication: DIABETES MELLITUS
     Dosage: 4 MG
     Dates: start: 19800101
  7. OXCARBAZEPINE [Concomitant]
     Indication: ARTHRALGIA
     Dosage: 1800 MG
     Dates: start: 20050101
  8. PRADAXA [Suspect]
     Indication: ATRIAL FIBRILLATION
     Dosage: 300 MG
     Route: 048
     Dates: start: 20101115

REACTIONS (4)
  - HEADACHE [None]
  - RECTAL HAEMORRHAGE [None]
  - ABDOMINAL DISCOMFORT [None]
  - SKIN HAEMORRHAGE [None]
